FAERS Safety Report 23644386 (Version 1)
Quarter: 2024Q1

REPORT INFORMATION
  Report Type: Spontaneous
  Country: US (occurrence: US)
  Receive Date: 20240318
  Receipt Date: 20240318
  Transmission Date: 20240409
  Serious: No
  Sender: FDA-Public Use
  Company Number: US-SA-SAC20240314000216

PATIENT
  Sex: Female

DRUGS (28)
  1. DUPIXENT [Suspect]
     Active Substance: DUPILUMAB
     Indication: Dermatitis atopic
     Dosage: 300 MG, QOW
     Route: 058
  2. ADDERALL [Concomitant]
     Active Substance: AMPHETAMINE ASPARTATE\AMPHETAMINE SULFATE\DEXTROAMPHETAMINE SACCHARATE\DEXTROAMPHETAMINE SULFATE
  3. ASPIRIN [Concomitant]
     Active Substance: ASPIRIN
  4. DORZOLAMIDE [Concomitant]
     Active Substance: DORZOLAMIDE
  5. FLUTICASONE [Concomitant]
     Active Substance: FLUTICASONE
  6. FUROSEMIDE [Concomitant]
     Active Substance: FUROSEMIDE
  7. IPRATROPIUM [Concomitant]
     Active Substance: IPRATROPIUM
  8. LUMIGAN [Concomitant]
     Active Substance: BIMATOPROST
  9. OLANZAPINE [Concomitant]
     Active Substance: OLANZAPINE
  10. OLOPATADINE [Concomitant]
     Active Substance: OLOPATADINE
  11. PREDNISONE [Concomitant]
     Active Substance: PREDNISONE
  12. RESTASIS [Concomitant]
     Active Substance: CYCLOSPORINE
  13. SPIRIVA [Concomitant]
     Active Substance: TIOTROPIUM BROMIDE MONOHYDRATE
     Dosage: 325MG
  14. TYLENOL [Concomitant]
     Active Substance: ACETAMINOPHEN
  15. CEPHALEXIN [Concomitant]
     Active Substance: CEPHALEXIN
     Dosage: 250MG
  16. ADVAIR HFA [Concomitant]
     Active Substance: FLUTICASONE PROPIONATE\SALMETEROL XINAFOATE
  17. ESTRACE [Concomitant]
     Active Substance: ESTRADIOL
  18. PATADAY [Concomitant]
     Active Substance: OLOPATADINE HYDROCHLORIDE
  19. RANITIDINE HYDROCHLORIDE [Concomitant]
     Active Substance: RANITIDINE HYDROCHLORIDE
  20. VENTOLIN HFA [Concomitant]
     Active Substance: ALBUTEROL SULFATE
  21. ZOLPIDEM [Concomitant]
     Active Substance: ZOLPIDEM TARTRATE
  22. ZYVOX [Concomitant]
     Active Substance: LINEZOLID
  23. ACETAMINOPHEN\OXYCODONE HYDROCHLORIDE [Concomitant]
     Active Substance: ACETAMINOPHEN\OXYCODONE HYDROCHLORIDE
  24. CIPROFLOXACIN HYDROCHLORIDE [Concomitant]
     Active Substance: CIPROFLOXACIN HYDROCHLORIDE
  25. CLINDAMYCIN [Concomitant]
     Active Substance: CLINDAMYCIN
  26. ALENDRONATE [Concomitant]
     Active Substance: ALENDRONATE SODIUM
  27. SIMBRINZA [Concomitant]
     Active Substance: BRIMONIDINE TARTRATE\BRINZOLAMIDE
  28. PHENYTOIN [Concomitant]
     Active Substance: PHENYTOIN

REACTIONS (5)
  - Diarrhoea [Unknown]
  - Vomiting [Unknown]
  - Swelling of eyelid [Unknown]
  - Oropharyngeal pain [Unknown]
  - Injection site pain [Unknown]
